FAERS Safety Report 5457192-5 (Version None)
Quarter: 2007Q3

REPORT INFORMATION
  Report Type: 
  Country: None (occurrence: None)
  Receive Date: 20070918
  Receipt Date: 20070125
  Transmission Date: 20080115
  Serious: Yes (Disabling)
  Sender: FDA-Public Use
  Company Number: US-ASTRAZENECA-2007UW01638

PATIENT
  Age: 50 Year
  Sex: Male

DRUGS (4)
  1. SEROQUEL [Suspect]
     Route: 048
     Dates: start: 20060101
  2. EFFEXOR [Concomitant]
  3. CLONOPIN [Concomitant]
  4. NEUROTON [Concomitant]

REACTIONS (1)
  - CATARACT [None]
